FAERS Safety Report 5903373-3 (Version None)
Quarter: 2008Q3

REPORT INFORMATION
  Report Type: 
  Country: None (occurrence: None)
  Receive Date: 20080926
  Receipt Date: 20080923
  Transmission Date: 20090109
  Serious: Yes (Other)
  Sender: FDA-Public Use
  Company Number: 2008SP019510

PATIENT
  Age: 60 Year
  Sex: Female

DRUGS (3)
  1. VIRAFERONPEG [Suspect]
     Indication: HEPATITIS C
     Dosage: 0.5 MG;
  2. VIRAFERONPEG [Suspect]
     Indication: HEPATITIS C
     Dosage: 0.5 MG;
  3. REBETOL [Suspect]
     Indication: HEPATITIS C

REACTIONS (5)
  - DISEASE RECURRENCE [None]
  - DRUG INEFFECTIVE [None]
  - DRUG TOXICITY [None]
  - ERYTHEMA [None]
  - LEUKAEMIA [None]
